FAERS Safety Report 14284964 (Version 9)
Quarter: 2018Q3

REPORT INFORMATION
  Report Type: Report from Study
  Country: DE (occurrence: DE)
  Receive Date: 20171214
  Receipt Date: 20180723
  Transmission Date: 20181010
  Serious: Yes (Hospitalization, Other)
  Sender: FDA-Public Use
  Company Number: PHHY2017DE182835

PATIENT
  Age: 11 Year
  Sex: Male
  Weight: 45 kg

DRUGS (5)
  1. ILARIS [Suspect]
     Active Substance: CANAKINUMAB
     Dosage: UNK
     Route: 058
  2. ILARIS [Suspect]
     Active Substance: CANAKINUMAB
     Indication: MUCKLE-WELLS SYNDROME
     Dosage: 80 MG PER APPLICATION
     Route: 058
     Dates: start: 20171127
  3. LAMOTRIGINE. [Concomitant]
     Active Substance: LAMOTRIGINE
     Indication: PRODUCT USED FOR UNKNOWN INDICATION
     Dosage: 25 MG, BID (1?0?1)
     Route: 065
     Dates: start: 20170207, end: 20170403
  4. SULTIAME [Concomitant]
     Active Substance: SULTHIAME
     Indication: PRODUCT USED FOR UNKNOWN INDICATION
     Dosage: 100 MG, BID (1?0?1)
     Route: 065
     Dates: start: 20170207, end: 20171201
  5. ILARIS [Suspect]
     Active Substance: CANAKINUMAB
     Dosage: UNK
     Route: 058

REACTIONS (7)
  - Pyrexia [Recovered/Resolved]
  - Erythema [Recovered/Resolved]
  - Inflammation [Recovered/Resolved]
  - Tonsillitis streptococcal [Recovered/Resolved]
  - Scarlet fever [Recovered/Resolved]
  - Viral infection [Not Recovered/Not Resolved]
  - Rotavirus infection [Recovered/Resolved]

NARRATIVE: CASE EVENT DATE: 20171201
